FAERS Safety Report 12607016 (Version 2)
Quarter: 2019Q4

REPORT INFORMATION
  Report Type: Spontaneous
  Country: US (occurrence: US)
  Receive Date: 20160729
  Receipt Date: 20191009
  Transmission Date: 20200122
  Serious: Yes (Hospitalization, Other)
  Sender: FDA-Public Use
  Company Number: US-PFIZER INC-2011225506

PATIENT
  Age: 73 Year
  Sex: Female

DRUGS (18)
  1. ENBREL [Suspect]
     Active Substance: ETANERCEPT
     Dosage: 50 MG, ONCE WEEKLY
     Route: 058
  2. ENBREL [Suspect]
     Active Substance: ETANERCEPT
     Indication: RHEUMATOID ARTHRITIS
     Dosage: 50 MG, ONCE WEEKLY
     Route: 058
     Dates: start: 20020101
  3. ENBREL [Suspect]
     Active Substance: ETANERCEPT
     Indication: ANKYLOSING SPONDYLITIS
     Dosage: 50 MG, FREQ:1 WEEK; INTERVAL: 1
     Route: 058
     Dates: start: 20020101
  4. FOSAMAX [Suspect]
     Active Substance: ALENDRONATE SODIUM
     Dosage: UNK
     Route: 065
  5. CALCIUM [Concomitant]
     Active Substance: CALCIUM
     Dosage: UNK
  6. METHOTREXATE SODIUM. [Suspect]
     Active Substance: METHOTREXATE SODIUM
     Indication: ANKYLOSING SPONDYLITIS
     Dosage: UNK
     Route: 065
  7. PREDNISONE. [Concomitant]
     Active Substance: PREDNISONE
     Dosage: UNK
  8. MEDROL [Concomitant]
     Active Substance: METHYLPREDNISOLONE
     Dosage: UNK
  9. CORTISONE [Concomitant]
     Active Substance: CORTISONE
     Dosage: UNK
  10. PROLIA [Suspect]
     Active Substance: DENOSUMAB
     Dosage: UNK
  11. PLAQUENIL [Suspect]
     Active Substance: HYDROXYCHLOROQUINE SULFATE
     Indication: ANKYLOSING SPONDYLITIS
     Dosage: UNK
     Route: 065
  12. FOSAMAX [Suspect]
     Active Substance: ALENDRONATE SODIUM
     Dosage: UNK
  13. ZILLION [Concomitant]
     Dosage: UNK
  14. ENBREL [Suspect]
     Active Substance: ETANERCEPT
     Indication: ANKYLOSING SPONDYLITIS
     Dosage: 50 MG, WEEKLY
     Dates: start: 20140712
  15. ENBREL [Suspect]
     Active Substance: ETANERCEPT
     Indication: RHEUMATOID ARTHRITIS
     Dosage: 50 MG, FREQ:1 WEEK; INTERVAL: 1
     Dates: start: 20140712
  16. PROLIA [Suspect]
     Active Substance: DENOSUMAB
     Dosage: UNK
     Route: 065
  17. MAGNESIUM [Concomitant]
     Active Substance: MAGNESIUM
     Dosage: UNK
  18. CORTISONE [Concomitant]
     Active Substance: CORTISONE
     Dosage: UNK

REACTIONS (46)
  - Arthralgia [Not Recovered/Not Resolved]
  - Spider vein [Not Recovered/Not Resolved]
  - Joint warmth [Unknown]
  - Injection site erythema [Unknown]
  - Fall [Unknown]
  - Injection site haemorrhage [Unknown]
  - Hip fracture [Unknown]
  - Injection site pruritus [Unknown]
  - Injection site reaction [Unknown]
  - Device issue [Unknown]
  - Chest expansion decreased [Unknown]
  - Cough [Unknown]
  - Bladder disorder [Unknown]
  - Vascular rupture [Unknown]
  - Sinusitis [Unknown]
  - Swelling [Unknown]
  - Mobility decreased [Unknown]
  - Fractured sacrum [Unknown]
  - Musculoskeletal discomfort [Unknown]
  - Blood urine present [Unknown]
  - Oesophageal disorder [Unknown]
  - Bone density abnormal [Unknown]
  - Injection site mass [Unknown]
  - Sleep apnoea syndrome [Unknown]
  - Sinus disorder [Unknown]
  - Micturition urgency [Unknown]
  - Joint range of motion decreased [Unknown]
  - Arthritis [Unknown]
  - Accidental exposure to product [Unknown]
  - Exposure via skin contact [Unknown]
  - Injection site erythema [Unknown]
  - Joint swelling [Unknown]
  - Arthropathy [Unknown]
  - Knee deformity [Unknown]
  - Tuberculin test positive [Unknown]
  - Malaise [Unknown]
  - Pelvic fracture [Unknown]
  - Back pain [Not Recovered/Not Resolved]
  - Pain [Unknown]
  - Osteoporosis [Unknown]
  - Wrong technique in product usage process [Unknown]
  - Gait disturbance [Unknown]
  - Injection site pain [Unknown]
  - Injection site warmth [Unknown]
  - Tooth disorder [Unknown]
  - Therapeutic product effect incomplete [Unknown]

NARRATIVE: CASE EVENT DATE: 201408
